FAERS Safety Report 8908098 (Version 1)
Quarter: 2012Q4

REPORT INFORMATION
  Report Type: Report from Study
  Country: NO (occurrence: NO)
  Receive Date: 20121114
  Receipt Date: 20121114
  Transmission Date: 20130627
  Serious: Yes (Other)
  Sender: FDA-Public Use
  Company Number: PHHY2012NO104567

PATIENT

DRUGS (1)
  1. ACZ885 [Suspect]

REACTIONS (2)
  - Histiocytosis haematophagic [Recovered/Resolved]
  - Erythema infectiosum [Recovered/Resolved]
